FAERS Safety Report 9804156 (Version 1)
Quarter: 2014Q1

REPORT INFORMATION
  Report Type: Spontaneous
  Country: US (occurrence: US)
  Receive Date: 20140108
  Receipt Date: 20140108
  Transmission Date: 20141002
  Serious: Yes (Other)
  Sender: FDA-Public Use
  Company Number: PHHY2013US154770

PATIENT
  Age: 49 Year
  Sex: Female

DRUGS (1)
  1. METFORMIN [Suspect]
     Indication: TYPE 2 DIABETES MELLITUS

REACTIONS (19)
  - Haemodynamic instability [Recovered/Resolved]
  - Ejection fraction abnormal [Unknown]
  - Pulseless electrical activity [Recovered/Resolved]
  - Blood glucose decreased [Unknown]
  - Shock [Recovered/Resolved]
  - Lactic acidosis [Recovered/Resolved]
  - Lethargy [Recovered/Resolved]
  - Mental status changes [Recovered/Resolved]
  - Nausea [Recovered/Resolved]
  - Vomiting [Recovered/Resolved]
  - Blood lactic acid increased [Recovered/Resolved]
  - Anion gap increased [Recovered/Resolved]
  - Blood creatinine increased [Recovered/Resolved]
  - Blood bicarbonate decreased [Recovered/Resolved]
  - Tachypnoea [Recovered/Resolved]
  - Tachycardia [Recovered/Resolved]
  - Hypotension [Recovered/Resolved]
  - Hypothermia [Recovered/Resolved]
  - White blood cell count increased [Recovered/Resolved]
